FAERS Safety Report 9221696 (Version 1)
Quarter: 2013Q2

REPORT INFORMATION
  Report Type: Spontaneous
  Country: PR (occurrence: None)
  Receive Date: 20130408
  Receipt Date: 20130408
  Transmission Date: 20140414
  Serious: Yes (Life-Threatening, Hospitalization)
  Sender: FDA-Public Use
  Company Number: IPC201304-000119

PATIENT
  Age: 71 Year
  Sex: Male

DRUGS (3)
  1. METOPROLOL TARTRATE [Suspect]
     Indication: BLOOD PRESSURE ABNORMAL
  2. COTRIMOXAZOLE [Suspect]
     Indication: CELLULITIS
  3. LISINOPRIL (LISINOPRIL) (LISINOPRIL) [Suspect]
     Indication: BLOOD PRESSURE ABNORMAL

REACTIONS (8)
  - Hyperkalaemia [None]
  - Electrocardiogram QRS complex prolonged [None]
  - Atrioventricular block [None]
  - Hypotension [None]
  - Heart rate increased [None]
  - Blood creatinine increased [None]
  - Myalgia [None]
  - Unresponsive to stimuli [None]
